FAERS Safety Report 23479535 (Version 1)
Quarter: 2024Q1

REPORT INFORMATION
  Report Type: Spontaneous
  Country: DK (occurrence: None)
  Receive Date: 20240205
  Receipt Date: 20240205
  Transmission Date: 20240410
  Serious: Yes (Hospitalization, Other)
  Sender: FDA-Public Use
  Company Number: DK-MLMSERVICE-20240119-4775445-1

PATIENT
  Age: 64 Year
  Sex: Male

DRUGS (2)
  1. METHOTREXATE [Suspect]
     Active Substance: METHOTREXATE
     Indication: Rheumatoid arthritis
  2. TOFACITINIB [Suspect]
     Active Substance: TOFACITINIB
     Indication: Rheumatoid arthritis

REACTIONS (5)
  - Staphylococcal bacteraemia [Recovered/Resolved]
  - Septic arthritis staphylococcal [Recovered/Resolved]
  - Infectious pleural effusion [Unknown]
  - Medication error [Unknown]
  - Immunosuppression [Unknown]
